FAERS Safety Report 7230045-8 (Version None)
Quarter: 2011Q1

REPORT INFORMATION
  Report Type: 
  Country: None (occurrence: None)
  Receive Date: 20110118
  Receipt Date: 20110113
  Transmission Date: 20110831
  Serious: Yes (Other)
  Sender: FDA-Public Use
  Company Number: US-BIOGENIDEC-2011BI000109

PATIENT
  Age: 33 Year
  Sex: Female

DRUGS (5)
  1. NUVARING [Concomitant]
     Indication: CONTRACEPTION
  2. LEVOTHYROXINE [Concomitant]
     Indication: HYPOTHYROIDISM
  3. PRENATAL VITAMINS [Concomitant]
  4. TYSABRI [Suspect]
     Indication: MULTIPLE SCLEROSIS
     Route: 042
     Dates: start: 20100817, end: 20101119
  5. PROZAC [Concomitant]

REACTIONS (2)
  - INTRA-UTERINE DEATH [None]
  - PREGNANCY [None]
